FAERS Safety Report 9786468 (Version 1)
Quarter: 2013Q4

REPORT INFORMATION
  Report Type: Spontaneous
  Country: JP (occurrence: None)
  Receive Date: 20131223
  Receipt Date: 20131223
  Transmission Date: 20140711
  Serious: Yes (Hospitalization)
  Sender: FDA-Public Use
  Company Number: EUS-2012-00725

PATIENT
  Age: 13 Year
  Sex: Female
  Weight: 52 kg

DRUGS (1)
  1. ASPARAGINASE [Suspect]
     Indication: NON-HODGKIN^S LYMPHOMA
     Dosage: 6 TIMES IN 2

REACTIONS (6)
  - Pancreatitis acute [None]
  - Protein total decreased [None]
  - Hyperglycaemia [None]
  - Ileus paralytic [None]
  - Pleural effusion [None]
  - Blood lactate dehydrogenase increased [None]
